FAERS Safety Report 8077563-0 (Version None)
Quarter: 2012Q1

REPORT INFORMATION
  Report Type: 
  Country: None (occurrence: None)
  Receive Date: 20120123
  Receipt Date: 20120113
  Transmission Date: 20120608
  Serious: Yes (Hospitalization)
  Sender: FDA-Public Use
  Company Number: 2012-000174

PATIENT
  Age: 88 Year
  Sex: Male

DRUGS (6)
  1. MAGNOGENE /06364501/ (MAGNESIUM BROMIDE, MAGNESIUM FLUORIDE, MAGNESIUM [Concomitant]
  2. CARDURAN NEO (DOXAZOSIN MESILATE) [Concomitant]
  3. MASTICAL D (CALCIUM CARBONATE, COLECALCIFEROL) [Suspect]
     Indication: HYPOCALCAEMIA
     Dosage: 500 MG, ORAL
     Route: 048
     Dates: start: 20110805, end: 20110820
  4. DISGREN /00675901/ (TRIFLUSAL) [Concomitant]
  5. LIPEMOL (PRAVSTATIN SODIUM) [Concomitant]
  6. ACTONEL [Suspect]
     Indication: HYPOCALCAEMIA
     Dosage: 75 MG, ORAL
     Route: 048
     Dates: start: 20070101, end: 20110820

REACTIONS (2)
  - HYPERCALCAEMIA [None]
  - GAIT DISTURBANCE [None]
